FAERS Safety Report 13356256 (Version 2)
Quarter: 2017Q1

REPORT INFORMATION
  Report Type: Spontaneous
  Country: GB (occurrence: GB)
  Receive Date: 20170321
  Receipt Date: 20170322
  Transmission Date: 20170429
  Serious: Yes (Hospitalization)
  Sender: FDA-Public Use
  Company Number: GB-PFIZER INC-2017119189

PATIENT
  Age: 61 Year
  Sex: Male

DRUGS (11)
  1. LANTUS [Concomitant]
     Active Substance: INSULIN GLARGINE
     Dosage: 15 IU, 1X/DAY (AT NIGHT.)
  2. BISOPROLOL [Concomitant]
     Active Substance: BISOPROLOL
     Dosage: 2.5 MG, 1X/DAY (IN THE MORNING.)
  3. VITAMIN B COMPOUND STRONG [Concomitant]
     Dosage: 1 DF, 3X/DAY
  4. ROSUVASTATIN. [Concomitant]
     Active Substance: ROSUVASTATIN
     Dosage: 20 MG, 1X/DAY (AT NIGHT.)
  5. LANSOPRAZOLE. [Concomitant]
     Active Substance: LANSOPRAZOLE
     Dosage: 30 MG, 1X/DAY (EACH MORNING.)
  6. RAMIPRIL. [Concomitant]
     Active Substance: RAMIPRIL
     Dosage: 2.5 MG, 1X/DAY
  7. THIAMINE. [Concomitant]
     Active Substance: THIAMINE
     Dosage: 100 MG, 1X/DAY
  8. ASPIRIN (E.C.) [Concomitant]
     Active Substance: ASPIRIN
     Dosage: 75 MG, 1X/DAY
  9. HUMALOG [Concomitant]
     Active Substance: INSULIN LISPRO
     Dosage: 10 UNITS IN THE MORNING, 5 UNITS AT LUNCH, AND 10 UNITS AT TEATIME
  10. LYRICA [Suspect]
     Active Substance: PREGABALIN
     Dosage: 50 MG, 2X/DAY
  11. SODIUM BICARBONATE. [Concomitant]
     Active Substance: SODIUM BICARBONATE
     Dosage: 500 MG, 3X/DAY (AFTER FOOD.)

REACTIONS (3)
  - Loss of consciousness [Unknown]
  - Seizure [Unknown]
  - Blood potassium increased [Unknown]
